FAERS Safety Report 24324767 (Version 1)
Quarter: 2024Q3

REPORT INFORMATION
  Report Type: Spontaneous
  Country: US (occurrence: US)
  Receive Date: 20240916
  Receipt Date: 20240916
  Transmission Date: 20241016
  Serious: No
  Sender: PAREXEL
  Company Number: US-Stemline Therapeutics, Inc.-2024ST002151

PATIENT
  Age: 64 Year
  Sex: Female

DRUGS (9)
  1. ORSERDU [Suspect]
     Active Substance: ELACESTRANT
     Indication: Product used for unknown indication
     Dates: start: 20240306
  2. ALBUTEROL SULFATE [Concomitant]
     Active Substance: ALBUTEROL SULFATE
     Indication: Product used for unknown indication
  3. AMLODIPINE BESYLATE [Concomitant]
     Active Substance: AMLODIPINE BESYLATE
     Indication: Product used for unknown indication
  4. CITALOPRAM HYDROBROMIDE [Concomitant]
     Active Substance: CITALOPRAM HYDROBROMIDE
     Indication: Product used for unknown indication
  5. EXEMESTANE [Concomitant]
     Active Substance: EXEMESTANE
     Indication: Product used for unknown indication
  6. LISINOPRIL [Concomitant]
     Active Substance: LISINOPRIL
     Indication: Product used for unknown indication
  7. FAMOTIDINE [Concomitant]
     Active Substance: FAMOTIDINE
     Indication: Product used for unknown indication
  8. MIRALAX [Concomitant]
     Active Substance: POLYETHYLENE GLYCOL 3350
     Indication: Product used for unknown indication
  9. ONDANSETRON [Concomitant]
     Active Substance: ONDANSETRON
     Indication: Product used for unknown indication

REACTIONS (12)
  - Abdominal distension [Recovering/Resolving]
  - Dysmenorrhoea [Unknown]
  - Flatulence [Recovered/Resolved]
  - Fluid retention [Not Recovered/Not Resolved]
  - Apathy [Not Recovered/Not Resolved]
  - Product dose omission issue [Unknown]
  - Gastrooesophageal reflux disease [Not Recovered/Not Resolved]
  - Constipation [Recovering/Resolving]
  - Dyspnoea [Not Recovered/Not Resolved]
  - Fatigue [Recovering/Resolving]
  - Dyspepsia [Not Recovered/Not Resolved]
  - Nausea [Not Recovered/Not Resolved]

NARRATIVE: CASE EVENT DATE: 20240501
